FAERS Safety Report 9266594 (Version 2)
Quarter: 2013Q2

REPORT INFORMATION
  Report Type: Spontaneous
  Country: JP (occurrence: JP)
  Receive Date: 20130502
  Receipt Date: 20130619
  Transmission Date: 20140414
  Serious: Yes (Hospitalization, Other)
  Sender: FDA-Public Use
  Company Number: PHHY2013JP023057

PATIENT
  Age: 57 Year
  Sex: Male

DRUGS (8)
  1. TEGRETOL [Suspect]
     Indication: HYPOAESTHESIA
     Dosage: 100 MG, TID
     Route: 048
     Dates: start: 20110804, end: 20111014
  2. BASEN [Concomitant]
     Indication: DIABETES MELLITUS
     Dosage: 0.2 MG, TID
     Route: 048
     Dates: start: 20110627
  3. GABAPEN [Concomitant]
     Dosage: 300 MG, TID
     Route: 048
     Dates: start: 20110627, end: 20110803
  4. BAYASPIRIN [Concomitant]
     Dosage: 1 DF, QD
     Route: 048
     Dates: start: 20110627
  5. PLAVIX [Concomitant]
  6. NESINA [Concomitant]
  7. BENAMBAX [Concomitant]
     Dosage: 150 MG (ABOUT 3.5MG/KG/DAY), DAILY
     Dates: end: 20111215
  8. KLARICID [Concomitant]
     Indication: CHRONIC SINUSITIS
     Dosage: 1 DF, DAILY

REACTIONS (18)
  - Diabetes mellitus [Unknown]
  - Drug reaction with eosinophilia and systemic symptoms [Unknown]
  - Stevens-Johnson syndrome [Unknown]
  - Pyrexia [Recovered/Resolved]
  - Decreased appetite [Unknown]
  - Hepatic function abnormal [Recovering/Resolving]
  - Rash [Recovering/Resolving]
  - Generalised erythema [Unknown]
  - Mouth ulceration [Unknown]
  - Chronic sinusitis [Unknown]
  - Cytomegalovirus infection [Unknown]
  - Sepsis [Unknown]
  - Cough [Unknown]
  - Pneumocystis jirovecii pneumonia [Unknown]
  - Renal impairment [Unknown]
  - Blood potassium increased [Unknown]
  - Hepatitis B surface antibody positive [Unknown]
  - Anti-thyroid antibody positive [Unknown]
